FAERS Safety Report 19945344 (Version 2)
Quarter: 2021Q4

REPORT INFORMATION
  Report Type: Report from Study
  Country: GB (occurrence: GB)
  Receive Date: 20211012
  Receipt Date: 20211122
  Transmission Date: 20220303
  Serious: Yes (Other)
  Sender: FDA-Public Use
  Company Number: GB-ABBVIE-18P-167-2484641-00

PATIENT
  Age: 12 Year
  Sex: Female
  Weight: 30.8 kg

DRUGS (16)
  1. HUMIRA [Suspect]
     Active Substance: ADALIMUMAB
     Indication: Crohn^s disease
     Route: 058
     Dates: start: 20160210, end: 20180810
  2. HUMIRA [Suspect]
     Active Substance: ADALIMUMAB
     Route: 058
     Dates: start: 20180912
  3. AZATHIOPRINE [Suspect]
     Active Substance: AZATHIOPRINE
     Indication: Crohn^s disease
     Dosage: ALTERNATE DAYS
     Route: 048
     Dates: start: 20131116, end: 20161115
  4. AZATHIOPRINE [Suspect]
     Active Substance: AZATHIOPRINE
     Route: 048
     Dates: start: 20161116, end: 20200909
  5. PENTASA [Concomitant]
     Active Substance: MESALAMINE
     Indication: Crohn^s disease
     Route: 048
     Dates: start: 20110427
  6. SYTRON [Concomitant]
     Indication: Iron deficiency
     Route: 048
     Dates: start: 20110909
  7. FLUCLOXICILLIN [Concomitant]
     Indication: Cheilitis granulomatosa
     Route: 048
     Dates: start: 20161117, end: 201612
  8. FLUCLOXICILLIN [Concomitant]
     Route: 048
     Dates: start: 20170403, end: 20170416
  9. FLUCLOXICILLIN [Concomitant]
     Route: 048
     Dates: start: 20171128, end: 201712
  10. FLUCLOXICILLIN [Concomitant]
     Route: 042
     Dates: start: 20180329, end: 20180402
  11. CHLOROCRESOL [Concomitant]
     Active Substance: CHLOROCRESOL
     Indication: Eczema
     Dosage: CREAM, AS REQUIRED
     Route: 061
     Dates: start: 20170403
  12. CARBOHYDRATES\FATTY ACIDS\MINERALS\PROTEIN\VITAMINS [Concomitant]
     Active Substance: CARBOHYDRATES\FATTY ACIDS\MINERALS\PROTEIN\VITAMINS
     Indication: Nutritional supplementation
     Route: 048
     Dates: start: 201706
  13. BETNESOL [Concomitant]
     Indication: Cheilitis granulomatosa
     Dosage: MOUTHWASH
     Dates: start: 20171128
  14. HYDROUS OINTMENT [Concomitant]
     Indication: Crohn^s disease
     Dosage: TOPICAL CREAM, AS REQUIRED
     Route: 061
     Dates: start: 201712
  15. ZERO AQUEOUS CREAM [Concomitant]
     Indication: Crohn^s disease
     Dosage: TOPICAL CREAM, AS REQUIRED
     Route: 061
     Dates: start: 201709
  16. ACIFEROL [Concomitant]
     Indication: Vitamin supplementation
     Route: 048
     Dates: start: 201711

REACTIONS (1)
  - Rectal stenosis [Not Recovered/Not Resolved]

NARRATIVE: CASE EVENT DATE: 20180605
